APPROVED DRUG PRODUCT: VALSARTAN AND HYDROCHLOROTHIAZIDE
Active Ingredient: HYDROCHLOROTHIAZIDE; VALSARTAN
Strength: 25MG;160MG
Dosage Form/Route: TABLET;ORAL
Application: A203000 | Product #004
Applicant: ZYDUS LIFESCIENCES LTD
Approved: Mar 15, 2019 | RLD: No | RS: No | Type: DISCN